FAERS Safety Report 13903044 (Version 2)
Quarter: 2017Q3

REPORT INFORMATION
  Report Type: Other
  Country: CA (occurrence: CA)
  Receive Date: 20170824
  Receipt Date: 20170922
  Transmission Date: 20171127
  Serious: Yes (Hospitalization, Other)
  Sender: FDA-Public Use
  Company Number: CA-APOTEX-2017AP016752

PATIENT
  Age: 61 Year
  Sex: Male
  Weight: 90 kg

DRUGS (4)
  1. SIMPONI [Suspect]
     Active Substance: GOLIMUMAB
     Indication: GASTROINTESTINAL HAEMORRHAGE
  2. APO-MELOXICAM [Suspect]
     Active Substance: MELOXICAM
     Indication: PRODUCT USED FOR UNKNOWN INDICATION
     Route: 065
  3. METHOTREXATE. [Suspect]
     Active Substance: METHOTREXATE
     Indication: PRODUCT USED FOR UNKNOWN INDICATION
     Route: 065
  4. SIMPONI [Suspect]
     Active Substance: GOLIMUMAB
     Indication: RHEUMATOID ARTHRITIS
     Dosage: 50 MG, ONE EVERY 28 DAYS
     Route: 058

REACTIONS (7)
  - Rectal haemorrhage [Unknown]
  - Hepatic enzyme increased [Unknown]
  - Joint swelling [Unknown]
  - Off label use [Unknown]
  - Drug ineffective [Unknown]
  - Gastric haemorrhage [Unknown]
  - Product use in unapproved indication [Unknown]
